FAERS Safety Report 4361362-7 (Version None)
Quarter: 2004Q2

REPORT INFORMATION
  Report Type: 
  Country: None (occurrence: None)
  Receive Date: 20040517
  Receipt Date: 20040504
  Transmission Date: 20050107
  Serious: Yes (Hospitalization)
  Sender: FDA-Public Use
  Company Number: 04P-163-0259538-00

PATIENT
  Sex: Female
  Weight: 52.6173 kg

DRUGS (8)
  1. HUMIRA [Suspect]
     Indication: RHEUMATOID ARTHRITIS
     Dosage: 40 MG, 1 IN 2 WK, SUBCUTANEOUS
     Route: 058
     Dates: start: 20040304, end: 20040324
  2. FUROSEMIDE [Concomitant]
  3. HYDROXYCHLOROQUINE PHOSPHATE [Concomitant]
  4. RALOXIFENE HCL [Concomitant]
  5. ATENOLOL [Concomitant]
  6. POTASSIUM [Concomitant]
  7. ENALAPRIL [Concomitant]
  8. RISEDRONATE SODIUM [Concomitant]

REACTIONS (2)
  - CARDIAC FAILURE CONGESTIVE [None]
  - VERTIGO [None]
